FAERS Safety Report 17074432 (Version 1)
Quarter: 2019Q4

REPORT INFORMATION
  Report Type: Spontaneous
  Country: FR (occurrence: FR)
  Receive Date: 20191126
  Receipt Date: 20191126
  Transmission Date: 20200122
  Serious: Yes (Hospitalization)
  Sender: FDA-Public Use
  Company Number: FR-TEVA-2019-FR-1140828

PATIENT
  Age: 68 Year
  Sex: Male

DRUGS (12)
  1. SKENAN [Concomitant]
     Active Substance: MORPHINE SULFATE
     Dosage: 2 DF
     Route: 048
  2. ZOPHREN [Concomitant]
     Active Substance: ONDANSETRON
     Dosage: POSTCHIMIOTHERAPIE
     Route: 048
  3. LOPERAMIDE (CHLORHYDRATE DE) [Concomitant]
     Active Substance: LOPERAMIDE
     Dosage: 12 MG
     Route: 048
  4. ACTISKENAN 10 MG, G?LULE [Concomitant]
     Active Substance: MORPHINE SULFATE
     Dosage: 1 DF
     Route: 048
  5. FLUOROURACIL. [Suspect]
     Active Substance: FLUOROURACIL
     Indication: PANCREATIC CARCINOMA METASTATIC
     Dosage: 12 COURSES IN ALL FOLFIRINOX, 2340 MG
     Route: 042
     Dates: start: 20190402, end: 20190901
  6. PARACETAMOL [Concomitant]
     Active Substance: ACETAMINOPHEN
     Route: 048
  7. ELOXATIN [Suspect]
     Active Substance: OXALIPLATIN
     Indication: PANCREATIC CARCINOMA METASTATIC
     Dosage: FOLFIRINOX, 145 MG
     Route: 042
     Dates: start: 20190402, end: 20190917
  8. EUPANTOL [Concomitant]
     Active Substance: PANTOPRAZOLE SODIUM
     Dosage: 1 DF
     Route: 048
  9. SOLUPRED [Concomitant]
     Dosage: POST CHEMO, 40 MG
     Route: 048
  10. SMECTA [Concomitant]
     Active Substance: MONTMORILLONITE
     Dosage: 3 DF
     Route: 048
  11. CAMPTO [Suspect]
     Active Substance: IRINOTECAN
     Indication: PANCREATIC CARCINOMA METASTATIC
     Dosage: 12 COURSES IN ALL FOLFIRINOX, 152 MG
     Route: 042
     Dates: start: 20190402, end: 20190917
  12. PRIMPERAN [Concomitant]
     Active Substance: METOCLOPRAMIDE HYDROCHLORIDE
     Dosage: 30 MG
     Route: 048

REACTIONS (1)
  - Pulmonary fibrosis [Not Recovered/Not Resolved]

NARRATIVE: CASE EVENT DATE: 20190917
